FAERS Safety Report 6771242-5 (Version None)
Quarter: 2010Q2

REPORT INFORMATION
  Report Type: 
  Country: None (occurrence: None)
  Receive Date: 20100616
  Receipt Date: 20100607
  Transmission Date: 20101027
  Serious: Yes (Other)
  Sender: FDA-Public Use
  Company Number: DE-ASTRAZENECA-2010SE26365

PATIENT
  Age: 76 Year
  Sex: Female

DRUGS (26)
  1. NEXIUM [Suspect]
     Route: 048
  2. FUROSEMID [Suspect]
     Route: 048
  3. XIPAMID [Suspect]
     Route: 048
     Dates: end: 20090714
  4. DOMINAL [Suspect]
     Route: 048
     Dates: end: 20090709
  5. DOMINAL [Suspect]
     Route: 048
     Dates: start: 20090710
  6. ZYPREXA [Suspect]
     Route: 048
     Dates: end: 20090710
  7. ZYPREXA [Suspect]
     Route: 048
     Dates: start: 20090711, end: 20090713
  8. CYMBALTA [Suspect]
     Route: 048
     Dates: end: 20090709
  9. CYMBALTA [Suspect]
     Route: 048
     Dates: start: 20090710
  10. SOLVEX [Concomitant]
     Route: 048
     Dates: end: 20090715
  11. LYRICA [Concomitant]
     Route: 048
     Dates: end: 20090710
  12. LYRICA [Concomitant]
     Route: 048
     Dates: start: 20090711, end: 20090712
  13. LYRICA [Concomitant]
     Route: 048
     Dates: start: 20090713, end: 20090714
  14. LYRICA [Concomitant]
     Route: 048
     Dates: start: 20090715, end: 20090715
  15. LYRICA [Concomitant]
     Route: 048
     Dates: start: 20090716, end: 20090716
  16. LYRICA [Concomitant]
     Route: 048
     Dates: start: 20090717, end: 20090719
  17. LYRICA [Concomitant]
     Route: 048
     Dates: start: 20090720, end: 20090723
  18. LYRICA [Concomitant]
     Route: 048
     Dates: start: 20090724
  19. ACTRAPID [Concomitant]
     Dosage: 18 IE DAILY
     Route: 058
     Dates: start: 20090709
  20. LEVOTHYROXINE SODIUM [Concomitant]
     Route: 048
  21. KALINOR [Concomitant]
     Route: 048
     Dates: end: 20090713
  22. KALINOR [Concomitant]
     Route: 048
     Dates: start: 20090714, end: 20090729
  23. ASPIRIN [Concomitant]
     Route: 048
  24. SIMVASTATIN [Concomitant]
     Route: 048
  25. AMIODARONE HCL [Concomitant]
     Route: 048
     Dates: end: 20090715
  26. AMIODARONE HCL [Concomitant]
     Route: 048
     Dates: start: 20090716

REACTIONS (4)
  - ELECTROCARDIOGRAM QT PROLONGED [None]
  - FALL [None]
  - HYPOKALAEMIA [None]
  - HYPONATRAEMIA [None]
